FAERS Safety Report 24856061 (Version 1)
Quarter: 2025Q1

REPORT INFORMATION
  Report Type: Spontaneous
  Country: GB (occurrence: GB)
  Receive Date: 20250117
  Receipt Date: 20250117
  Transmission Date: 20250409
  Serious: Yes (Death, Life-Threatening, Other)
  Sender: MYLAN
  Company Number: GB-MHRA-TPP19795852C11756329YC1735822330096

PATIENT
  Age: 75 Year
  Sex: Female
  Weight: 46 kg

DRUGS (18)
  1. SILDENAFIL [Suspect]
     Active Substance: SILDENAFIL
     Indication: Product used for unknown indication
     Route: 065
  2. RANITIDINE [Concomitant]
     Active Substance: RANITIDINE
     Dosage: 1 DOSAGE FORM, QD (TAKE ONE ONCE DAILY)
     Route: 065
     Dates: start: 20161108
  3. ALBUTEROL [Concomitant]
     Active Substance: ALBUTEROL
     Route: 055
     Dates: start: 20161108
  4. LIXISENATIDE [Concomitant]
     Active Substance: LIXISENATIDE
     Dosage: QD (ONCE A DAY)
     Route: 065
     Dates: start: 20180213
  5. INSULIN ASPART [Concomitant]
     Active Substance: INSULIN ASPART
     Route: 065
     Dates: start: 20180319
  6. INDAPAMIDE [Concomitant]
     Active Substance: INDAPAMIDE
     Dosage: 1 DOSAGE FORM, QD (TAKE ONE EACH MORNING)
     Route: 065
     Dates: start: 20180319
  7. ACETAMINOPHEN [Concomitant]
     Active Substance: ACETAMINOPHEN
     Dosage: 2 DOSAGE FORM, Q6H (FOUR TIMES DAILY)
     Route: 065
     Dates: start: 20180621
  8. BECLOMETHASONE\FORMOTEROL [Concomitant]
     Active Substance: BECLOMETHASONE\FORMOTEROL
     Dosage: 1 DOSAGE FORM, BID (ONE PUFFS TWICE DAILY )
     Route: 065
     Dates: start: 20180802
  9. IBUPROFEN [Concomitant]
     Active Substance: IBUPROFEN
     Dosage: 1 DOSAGE FORM, Q8H (TAKE ONE 3 TIMES/DAY)
     Route: 065
     Dates: start: 20180802
  10. BISOPROLOL [Concomitant]
     Active Substance: BISOPROLOL
     Dosage: 1 DOSAGE FORM, QD (TAKE ONE DAILY)
     Route: 065
     Dates: start: 20190827
  11. GABAPENTIN [Concomitant]
     Active Substance: GABAPENTIN
     Dosage: 1 DOSAGE FORM, Q8H (TAKE ONE 3 TIMES/DAY)
     Route: 065
     Dates: start: 20190827
  12. VENTOLIN [Concomitant]
     Active Substance: ALBUTEROL SULFATE
     Route: 055
     Dates: start: 20190828
  13. CITALOPRAM [Concomitant]
     Active Substance: CITALOPRAM
     Dosage: 1 DOSAGE FORM, QD (TAKE ONE DAILY)
     Route: 065
     Dates: start: 20211117
  14. CODEINE PHOSPHATE [Concomitant]
     Active Substance: CODEINE PHOSPHATE
     Dosage: 1 DOSAGE FORM, Q6H (TAKE ONE 4 TIMES/DAY)
     Route: 065
     Dates: start: 20220805
  15. HYPROMELLOSES [Concomitant]
     Active Substance: HYPROMELLOSES
     Route: 065
     Dates: start: 20220819
  16. ATORVASTATIN [Concomitant]
     Active Substance: ATORVASTATIN
     Dosage: 1 DOSAGE FORM, QD(TAKE ONE DAILY)
     Route: 065
     Dates: start: 20221102
  17. Vagirux [Concomitant]
     Dosage: 1 DOSAGE FORM, QW (INSERT ONE WEEKLY. WASH APPLICATOR AFTER AND BE..)
     Route: 065
     Dates: start: 20221102
  18. ASPIRIN [Concomitant]
     Active Substance: ASPIRIN
     Dosage: 1 DOSAGE FORM, QD (1 ONCE DAILY)
     Route: 065
     Dates: start: 20230214

REACTIONS (2)
  - Pharyngeal swelling [Fatal]
  - Anaphylactic reaction [Not Recovered/Not Resolved]
